FAERS Safety Report 13137589 (Version 1)
Quarter: 2017Q1

REPORT INFORMATION
  Report Type: Report from Study
  Country: ZA (occurrence: ZA)
  Receive Date: 20170123
  Receipt Date: 20170123
  Transmission Date: 20170428
  Serious: Yes (Other)
  Sender: FDA-Public Use
  Company Number: ZA-ROCHE-1882493

PATIENT
  Age: 58 Year
  Sex: Female
  Weight: 75.6 kg

DRUGS (1)
  1. VEMURAFENIB [Suspect]
     Active Substance: VEMURAFENIB
     Indication: METASTATIC MALIGNANT MELANOMA
     Route: 048
     Dates: start: 20170116

REACTIONS (1)
  - Dupuytren^s contracture [Unknown]

NARRATIVE: CASE EVENT DATE: 20170116
